FAERS Safety Report 9270044 (Version 2)
Quarter: 2013Q2

REPORT INFORMATION
  Report Type: Report from Study
  Country: DE (occurrence: DE)
  Receive Date: 20130503
  Receipt Date: 20130529
  Transmission Date: 20140414
  Serious: Yes (Death, Hospitalization)
  Sender: FDA-Public Use
  Company Number: DE-CELGENEUS-062-21880-09080649

PATIENT
  Sex: Female

DRUGS (7)
  1. REVLIMID [Suspect]
     Indication: ACUTE MYELOID LEUKAEMIA
     Dosage: 75 MILLIGRAM
     Route: 048
     Dates: start: 20090708, end: 20090731
  2. REVLIMID [Suspect]
     Dosage: 25 MILLIGRAM
     Route: 048
     Dates: start: 20090804, end: 20090807
  3. L-THYROXIN [Concomitant]
     Indication: HYPOTHYROIDISM
     Route: 065
     Dates: start: 1999, end: 2009
  4. SOLU DECORTIN H [Concomitant]
     Indication: RASH
     Route: 065
  5. TAVEGIL [Concomitant]
     Indication: RASH
     Route: 065
  6. COTRIM FORTE [Concomitant]
     Indication: PROPHYLAXIS
     Route: 065
  7. STILNOX [Concomitant]
     Indication: INSOMNIA
     Route: 065

REACTIONS (3)
  - Acute myeloid leukaemia [Fatal]
  - Urinary tract infection [Recovered/Resolved]
  - Pyrexia [Recovered/Resolved]
